FAERS Safety Report 8459539-4 (Version None)
Quarter: 2012Q2

REPORT INFORMATION
  Report Type: 
  Country: None (occurrence: None)
  Receive Date: 20120622
  Receipt Date: 20120612
  Transmission Date: 20120825
  Serious: Yes (Other)
  Sender: FDA-Public Use
  Company Number: CO-PFIZER INC-2012138410

PATIENT
  Age: 67 Year
  Sex: Male

DRUGS (2)
  1. OMEPRAZOLE [Concomitant]
     Dosage: UNK
  2. TERRAMICINA [Suspect]
     Indication: EYE INFECTION
     Dosage: 10 MG, UNK
     Route: 061
     Dates: start: 20020101

REACTIONS (1)
  - DEAFNESS [None]
